FAERS Safety Report 5866842-0 (Version None)
Quarter: 2008Q3

REPORT INFORMATION
  Report Type: 
  Country: None (occurrence: None)
  Receive Date: 20080902
  Receipt Date: 20080825
  Transmission Date: 20090109
  Serious: Yes (Other)
  Sender: FDA-Public Use
  Company Number: US-JNJFOC-20080805890

PATIENT
  Age: 29 Year
  Sex: Female

DRUGS (1)
  1. RETIN-A MICRO [Suspect]
     Indication: ACNE
     Dosage: 0.1% GEL
     Route: 061

REACTIONS (2)
  - ABORTION SPONTANEOUS [None]
  - DRUG EXPOSURE DURING PREGNANCY [None]
